FAERS Safety Report 5838536-9 (Version None)
Quarter: 2008Q3

REPORT INFORMATION
  Report Type: 
  Country: None (occurrence: None)
  Receive Date: 20080808
  Receipt Date: 20080730
  Transmission Date: 20090109
  Serious: Yes (Hospitalization)
  Sender: FDA-Public Use
  Company Number: NZ-ASTRAZENECA-2008AC02051

PATIENT
  Age: 67 Year
  Sex: Male

DRUGS (4)
  1. OMEPRAZOLE [Suspect]
     Indication: GASTROOESOPHAGEAL REFLUX DISEASE
     Route: 048
  2. CILAZAPRIL [Concomitant]
  3. METOPROLOL SUCCINATE [Concomitant]
  4. ALLOPURINOL [Concomitant]

REACTIONS (1)
  - HYPOMAGNESAEMIA [None]
